FAERS Safety Report 21886986 (Version 1)
Quarter: 2023Q1

REPORT INFORMATION
  Report Type: Spontaneous
  Country: CN (occurrence: CN)
  Receive Date: 20230119
  Receipt Date: 20230119
  Transmission Date: 20230417
  Serious: Yes (Life-Threatening, Hospitalization, Other)
  Sender: FDA-Public Use
  Company Number: CN-009507513-2301CHN006996

PATIENT
  Age: 73 Year
  Sex: Female
  Weight: 44 kg

DRUGS (3)
  1. KEYTRUDA [Suspect]
     Active Substance: PEMBROLIZUMAB
     Indication: Cervix carcinoma
     Dosage: 200 MG, ONCE
     Route: 041
     Dates: start: 20221024, end: 20221024
  2. IMIPENEM AND CILASTATIN [Suspect]
     Active Substance: CILASTATIN SODIUM\IMIPENEM
     Dosage: 0.5 (UNIT NOT PROVIDED), EVERY 8 HOURS
     Route: 041
     Dates: start: 20221114
  3. AVASTIN [Suspect]
     Active Substance: BEVACIZUMAB
     Indication: Cervix carcinoma
     Dosage: 350 MG, ONCE
     Route: 041
     Dates: start: 20221024, end: 20221024

REACTIONS (4)
  - Febrile neutropenia [Unknown]
  - White blood cell count decreased [Unknown]
  - Rash papular [Unknown]
  - Back pain [Unknown]

NARRATIVE: CASE EVENT DATE: 20221102
